FAERS Safety Report 12256180 (Version 1)
Quarter: 2016Q2

REPORT INFORMATION
  Report Type: Spontaneous
  Country: US (occurrence: US)
  Receive Date: 20160412
  Receipt Date: 20160412
  Transmission Date: 20160815
  Serious: Yes (Other)
  Sender: FDA-Public Use
  Company Number: US-PFIZER INC-2016102421

PATIENT
  Age: 63 Year
  Sex: Female
  Weight: 81 kg

DRUGS (2)
  1. IBRANCE [Suspect]
     Active Substance: PALBOCICLIB
     Indication: BREAST CANCER METASTATIC
     Dosage: 125 MG, 1X/DAY
     Route: 048
     Dates: start: 201511, end: 20160310
  2. FASLODEX [Concomitant]
     Active Substance: FULVESTRANT
     Indication: BLOOD OESTROGEN DECREASED
     Dosage: 500 MG, MONTHLY (INJECTED ONCE A MONTH)
     Dates: start: 201502

REACTIONS (5)
  - Alopecia [Not Recovered/Not Resolved]
  - Madarosis [Unknown]
  - Malaise [Unknown]
  - Pneumonia [Recovered/Resolved]
  - Influenza like illness [Recovered/Resolved]

NARRATIVE: CASE EVENT DATE: 201511
